FAERS Safety Report 18251623 (Version 1)
Quarter: 2020Q3

REPORT INFORMATION
  Report Type: Report from Study
  Country: US (occurrence: US)
  Receive Date: 20200910
  Receipt Date: 20200910
  Transmission Date: 20201103
  Serious: No
  Sender: FDA-Public Use
  Company Number: NVSC2020US244088

PATIENT
  Sex: Female

DRUGS (5)
  1. COSENTYX [Suspect]
     Active Substance: SECUKINUMAB
     Indication: PSORIATIC ARTHROPATHY
  2. CETAPHIL [Concomitant]
     Indication: LIP DRY
     Dosage: UNK
     Route: 065
  3. COSENTYX [Suspect]
     Active Substance: SECUKINUMAB
     Indication: PSORIASIS
     Dosage: 300 MG, QMO
     Route: 058
  4. VASELINE PURE [Concomitant]
     Active Substance: PETROLATUM
     Indication: LIP DRY
     Dosage: UNK
     Route: 065
  5. COCONUT OIL [Concomitant]
     Active Substance: COCONUT OIL
     Indication: LIP DRY
     Dosage: UNK
     Route: 065

REACTIONS (5)
  - Oral pain [Unknown]
  - Glossodynia [Unknown]
  - Hyperkeratosis [Unknown]
  - Dermatitis atopic [Unknown]
  - Gingival pain [Unknown]
